FAERS Safety Report 24228298 (Version 1)
Quarter: 2024Q3

REPORT INFORMATION
  Report Type: Spontaneous
  Country: FR (occurrence: FR)
  Receive Date: 20240820
  Receipt Date: 20240820
  Transmission Date: 20241017
  Serious: Yes (Life-Threatening)
  Sender: ACCORD
  Company Number: None

PATIENT
  Age: 64 Year
  Sex: Male
  Weight: 53.4 kg

DRUGS (8)
  1. FUROSEMIDE [Suspect]
     Active Substance: FUROSEMIDE
     Indication: Ascites
     Dates: start: 20240423, end: 20240626
  2. SPIRONOLACTONE [Suspect]
     Active Substance: SPIRONOLACTONE
     Indication: Ascites
     Dates: start: 20240319, end: 20240626
  3. KARDEGIC [Concomitant]
     Active Substance: ASPIRIN DL-LYSINE
     Dates: end: 20240626
  4. LEUCOVORIN CALCIUM [Concomitant]
     Active Substance: LEUCOVORIN CALCIUM
     Indication: Adenocarcinoma
     Dosage: C2
     Dates: start: 20240614, end: 20240614
  5. METFORMIN [Concomitant]
     Active Substance: METFORMIN HYDROCHLORIDE
     Dates: end: 20240626
  6. CETUXIMAB [Concomitant]
     Active Substance: CETUXIMAB
     Indication: Adenocarcinoma
     Dosage: C2
     Dates: start: 20240614, end: 20240614
  7. IRINOTECAN [Concomitant]
     Active Substance: IRINOTECAN
     Indication: Adenocarcinoma
     Dosage: C2
     Dates: start: 20240614, end: 20240614
  8. METHYLPREDNISOLONE [Concomitant]
     Active Substance: METHYLPREDNISOLONE
     Indication: Adenocarcinoma
     Dosage: C2
     Dates: start: 20240614, end: 20240614

REACTIONS (3)
  - Dehydration [Recovering/Resolving]
  - Acute kidney injury [Recovered/Resolved]
  - Hypotension [Recovering/Resolving]

NARRATIVE: CASE EVENT DATE: 20240626
